FAERS Safety Report 21847858 (Version 2)
Quarter: 2023Q1

REPORT INFORMATION
  Report Type: Report from Study
  Country: US (occurrence: None)
  Receive Date: 20230111
  Receipt Date: 20230201
  Transmission Date: 20230418
  Serious: Yes (Hospitalization)
  Sender: FDA-Public Use
  Company Number: US-ROCHE-3256934

PATIENT
  Age: 78 Year
  Sex: Female
  Weight: 46.6 kg

DRUGS (24)
  1. CEVOSTAMAB [Suspect]
     Active Substance: CEVOSTAMAB
     Indication: Plasma cell myeloma
     Dosage: ON 20/DEC/2022 FROM 4:08 PM TO 7:38 PM, SHE RECEIVED THE MOST RECENT DOSE (160 MG) OF CEVOSTAMAB PRI
     Route: 042
     Dates: start: 20221115
  2. TOCILIZUMAB [Suspect]
     Active Substance: TOCILIZUMAB
     Indication: Plasma cell myeloma
     Route: 042
     Dates: start: 20221118
  3. DAPSONE [Suspect]
     Active Substance: DAPSONE
     Indication: Prophylaxis
     Route: 048
     Dates: start: 20221201, end: 20221230
  4. VALACYCLOVIR [Concomitant]
     Active Substance: VALACYCLOVIR HYDROCHLORIDE
     Indication: Prophylaxis
     Route: 048
     Dates: start: 20190327
  5. VITAMIN D3 [Concomitant]
     Active Substance: CHOLECALCIFEROL
     Indication: Prophylaxis
     Dosage: 1 TABLET
     Route: 048
     Dates: start: 20220630
  6. OXYCODONE [Concomitant]
     Active Substance: OXYCODONE
     Indication: Back pain
     Route: 048
     Dates: start: 20220713
  7. OXYCODONE [Concomitant]
     Active Substance: OXYCODONE
     Route: 048
     Dates: start: 20220713
  8. LEVOTHYROXINE [Concomitant]
     Active Substance: LEVOTHYROXINE
     Indication: Hypothyroidism
     Route: 048
     Dates: start: 20220309
  9. DOCUSATE\SENNOSIDES [Concomitant]
     Active Substance: DOCUSATE\SENNOSIDES
     Indication: Constipation
     Dosage: 3 TABLET
     Route: 048
     Dates: start: 20190730
  10. FERROUS GLUCONATE [Concomitant]
     Active Substance: FERROUS GLUCONATE
     Indication: Iron deficiency anaemia
     Dosage: 1 TABLET
     Route: 048
     Dates: start: 20220429
  11. PROMETHAZINE [Concomitant]
     Active Substance: PROMETHAZINE HYDROCHLORIDE
     Indication: Nausea
     Route: 048
     Dates: start: 20190418
  12. ENOXAPARIN [Concomitant]
     Active Substance: ENOXAPARIN
     Indication: Prophylaxis
     Route: 058
     Dates: start: 20221114, end: 20221130
  13. PENTAMIDINE [Concomitant]
     Active Substance: PENTAMIDINE
     Indication: Prophylaxis
     Route: 042
     Dates: start: 20221129, end: 20221129
  14. MELATONIN [Concomitant]
     Active Substance: MELATONIN
     Indication: Insomnia
     Route: 048
     Dates: start: 20221121, end: 20221126
  15. POLYETHYLENE GLYCOL [Concomitant]
     Active Substance: POLYETHYLENE GLYCOL
     Indication: Constipation
     Dosage: OTHER
     Route: 048
     Dates: start: 20221129, end: 20221129
  16. VORICONAZOLE [Concomitant]
     Active Substance: VORICONAZOLE
     Indication: Pneumonitis
     Route: 048
     Dates: start: 20221130
  17. CEFEPIME [Concomitant]
     Active Substance: CEFEPIME HYDROCHLORIDE
     Indication: Pneumonitis
     Route: 042
     Dates: start: 20221120, end: 20221129
  18. HUMAN IMMUNOGLOBULIN G [Concomitant]
     Active Substance: HUMAN IMMUNOGLOBULIN G
     Indication: Hypogammaglobulinaemia
     Route: 042
     Dates: start: 20221122, end: 20221123
  19. VANCOMYCIN [Concomitant]
     Active Substance: VANCOMYCIN
     Indication: Pneumonitis
     Route: 042
     Dates: start: 20221122, end: 20221126
  20. POSACONAZOLE [Concomitant]
     Active Substance: POSACONAZOLE
     Indication: Pneumonitis
     Route: 048
     Dates: start: 20221123, end: 20221124
  21. AZITHROMYCIN [Concomitant]
     Active Substance: AZITHROMYCIN
     Indication: Pneumonitis
     Route: 048
     Dates: start: 20221123, end: 20221127
  22. AZITHROMYCIN [Concomitant]
     Active Substance: AZITHROMYCIN
     Route: 048
     Dates: start: 20221124, end: 20221130
  23. POTASSIUM CHLORIDE [Concomitant]
     Active Substance: POTASSIUM CHLORIDE
     Dosage: 80 OTHER
     Route: 042
     Dates: start: 20221124, end: 20221124
  24. FILGRASTIM [Concomitant]
     Active Substance: FILGRASTIM
     Indication: Neutrophil count decreased
     Route: 058
     Dates: start: 20221130, end: 20221130

REACTIONS (1)
  - Dyspnoea [Recovering/Resolving]

NARRATIVE: CASE EVENT DATE: 20221222
